FAERS Safety Report 16373643 (Version 1)
Quarter: 2019Q2

REPORT INFORMATION
  Report Type: Spontaneous
  Country: US (occurrence: US)
  Receive Date: 20190530
  Receipt Date: 20190530
  Transmission Date: 20190711
  Serious: No
  Sender: FDA-Public Use
  Company Number: US-SA-2019SA145910

PATIENT
  Age: 46 Year
  Sex: Male

DRUGS (6)
  1. NUCYNTA ER [Concomitant]
     Active Substance: TAPENTADOL HYDROCHLORIDE
  2. DUPIXENT [Suspect]
     Active Substance: DUPILUMAB
     Indication: DERMATITIS ATOPIC
     Dosage: 300 MG, QOW
     Route: 058
     Dates: start: 20190219
  3. HYDROCODONE [Concomitant]
     Active Substance: HYDROCODONE
  4. CLINDAMYCIN [CLINDAMYCIN PHOSPHATE] [Concomitant]
  5. TIZANIDINE. [Concomitant]
     Active Substance: TIZANIDINE
  6. GRALISE [Concomitant]
     Active Substance: GABAPENTIN

REACTIONS (3)
  - Acne [Not Recovered/Not Resolved]
  - Blister [Not Recovered/Not Resolved]
  - Rash [Not Recovered/Not Resolved]

NARRATIVE: CASE EVENT DATE: 20190522
